FAERS Safety Report 7777434-0 (Version None)
Quarter: 2011Q3

REPORT INFORMATION
  Report Type: 
  Country: None (occurrence: None)
  Receive Date: 20110922
  Receipt Date: 20110919
  Transmission Date: 20111222
  Serious: Yes (Other)
  Sender: FDA-Public Use
  Company Number: 2011SP025397

PATIENT
  Age: 42 Year
  Sex: Female

DRUGS (7)
  1. SINGULAIR [Concomitant]
  2. GANIRELIX ACETATE INJECTION [Suspect]
     Indication: ASSISTED FERTILISATION
     Dosage: 250 MCG; QD;SC
     Route: 058
     Dates: start: 20110531, end: 20110531
  3. ZYRTEC [Concomitant]
  4. PREVACID [Concomitant]
  5. ALBUTEROL [Concomitant]
  6. LABETALOL HCL [Concomitant]
  7. SEROQUEL [Concomitant]

REACTIONS (7)
  - FLUSHING [None]
  - BLOOD PRESSURE INCREASED [None]
  - EYE PRURITUS [None]
  - NEEDLE ISSUE [None]
  - LATEX ALLERGY [None]
  - WHEEZING [None]
  - RESPIRATORY DISTRESS [None]
